FAERS Safety Report 14142754 (Version 1)
Quarter: 2017Q4

REPORT INFORMATION
  Report Type: Spontaneous
  Country: US (occurrence: None)
  Receive Date: 20171030
  Receipt Date: 20171030
  Transmission Date: 20180321
  Serious: No
  Sender: FDA-Public Use
  Company Number: None

PATIENT
  Age: 69 Year
  Sex: Female

DRUGS (7)
  1. OCALIVA [Suspect]
     Active Substance: OBETICHOLIC ACID
     Indication: CHOLANGITIS
     Route: 048
     Dates: start: 20170112
  2. NIFEDICAL XL [Concomitant]
     Active Substance: NIFEDIPINE
  3. ESTRADIOL. [Concomitant]
     Active Substance: ESTRADIOL
  4. GLIPIZIDE. [Concomitant]
     Active Substance: GLIPIZIDE
  5. SIROLIMUS. [Concomitant]
     Active Substance: SIROLIMUS
  6. FOLIC ACID. [Concomitant]
     Active Substance: FOLIC ACID
  7. FOSINOPRIL [Concomitant]
     Active Substance: FOSINOPRIL

REACTIONS (2)
  - Therapy change [None]
  - Pruritus [None]

NARRATIVE: CASE EVENT DATE: 20171003
